FAERS Safety Report 10229378 (Version 5)
Quarter: 2014Q4

REPORT INFORMATION
  Report Type: Report from Study
  Country: FI (occurrence: FI)
  Receive Date: 20140611
  Receipt Date: 20141117
  Transmission Date: 20150528
  Serious: Yes (Hospitalization)
  Sender: FDA-Public Use
  Company Number: FI-ROCHE-1289264

PATIENT
  Age: 53 Year
  Sex: Female

DRUGS (23)
  1. TRASTUZUMAB [Suspect]
     Active Substance: TRASTUZUMAB
     Indication: HER-2 POSITIVE BREAST CANCER
     Dosage: LOADING DOSE OF 8MG/KG FOLLOWED BY THE MAINTAINANCE DOSE.?LAST DOSE PRIOR TO SAE: 04 OCT 2013
     Route: 042
     Dates: start: 20130711
  2. XGEVA [Concomitant]
     Active Substance: DENOSUMAB
     Indication: PROPHYLAXIS
     Route: 065
     Dates: start: 20130913
  3. PERTUZUMAB [Suspect]
     Active Substance: PERTUZUMAB
     Indication: HER-2 POSITIVE BREAST CANCER
     Dosage: LAST DOSE PRIOR TO SAE: 04 OCT 2013
     Route: 042
     Dates: start: 20130711
  4. CEFTRIAXONE. [Concomitant]
     Active Substance: CEFTRIAXONE
     Route: 065
     Dates: start: 20130810, end: 20130810
  5. OXAZEPAM. [Concomitant]
     Active Substance: OXAZEPAM
     Indication: ANXIETY
     Route: 065
     Dates: start: 20130611
  6. HYDROXYZINE HYDROCHLORIDE. [Concomitant]
     Active Substance: HYDROXYZINE HYDROCHLORIDE
     Route: 065
     Dates: start: 20130810, end: 20130810
  7. LOPERAMIDE [Concomitant]
     Active Substance: LOPERAMIDE
     Route: 065
     Dates: start: 20130622
  8. METFORMIN [Concomitant]
     Active Substance: METFORMIN HYDROCHLORIDE
     Route: 065
     Dates: start: 20130711, end: 20130912
  9. ACTRAPID [Concomitant]
     Active Substance: INSULIN HUMAN
     Route: 065
     Dates: start: 20130711
  10. ESOMEPRAZOLE [Concomitant]
     Active Substance: ESOMEPRAZOLE
     Route: 065
     Dates: start: 20131003
  11. DOCETAXEL. [Suspect]
     Active Substance: DOCETAXEL
     Indication: HER-2 POSITIVE BREAST CANCER
     Dosage: LAST DOSE PRIOR TO SAE: 04 OCT 2013
     Route: 042
     Dates: start: 20130711
  12. KALCIPOS-D [Concomitant]
     Active Substance: CALCIUM CARBONATE\CHOLECALCIFEROL
     Indication: HYPOCALCAEMIA
     Route: 065
     Dates: start: 20130912
  13. TAZOCIN [Concomitant]
     Active Substance: PIPERACILLIN SODIUM\TAZOBACTAM SODIUM
     Route: 065
     Dates: start: 20130811, end: 20130812
  14. TAVANIC [Concomitant]
     Active Substance: LEVOFLOXACIN
     Route: 065
     Dates: start: 20130812, end: 20130816
  15. DEXAMETHASON [Concomitant]
     Active Substance: DEXAMETHASONE
     Dosage: 15 MG DURING 3 DAYS
     Route: 065
     Dates: start: 20130711, end: 20131027
  16. JANUVIA [Concomitant]
     Active Substance: SITAGLIPTIN PHOSPHATE
     Route: 065
     Dates: start: 20131003
  17. GRANISETRON [Concomitant]
     Active Substance: GRANISETRON
     Route: 048
     Dates: start: 20130711
  18. TEMAZEPAM. [Concomitant]
     Active Substance: TEMAZEPAM
     Indication: INSOMNIA
     Route: 065
     Dates: start: 20130611
  19. PANADOL [Concomitant]
     Active Substance: ACETAMINOPHEN
     Route: 048
     Dates: start: 20130711
  20. NEULASTA [Concomitant]
     Active Substance: PEGFILGRASTIM
     Route: 058
     Dates: start: 20130712, end: 20130801
  21. METOCLOPRAMIDE. [Concomitant]
     Active Substance: METOCLOPRAMIDE
     Route: 065
     Dates: start: 20130903
  22. KEFEXIN [Concomitant]
     Active Substance: CEPHALEXIN
     Route: 065
     Dates: start: 20140618, end: 20140624
  23. FURESIS [Concomitant]
     Active Substance: FUROSEMIDE
     Dosage: 20-40MG
     Route: 065
     Dates: start: 20130627

REACTIONS (1)
  - Abdominal pain upper [Recovered/Resolved]

NARRATIVE: CASE EVENT DATE: 20131010
